FAERS Safety Report 17967907 (Version 1)
Quarter: 2020Q2

REPORT INFORMATION
  Report Type: Spontaneous
  Country: US (occurrence: US)
  Receive Date: 20200630
  Receipt Date: 20200630
  Transmission Date: 20200714
  Serious: No
  Sender: FDA-Public Use
  Company Number: None

PATIENT
  Age: 55 Year
  Sex: Female
  Weight: 74.25 kg

DRUGS (1)
  1. WALG SUN MOISTURIZING SPF 50 [Suspect]
     Active Substance: AVOBENZONE\HOMOSALATE\OCTISALATE\OCTOCRYLENE
     Indication: PROPHYLAXIS AGAINST SOLAR RADIATION
     Dosage: ?          QUANTITY:1 DROP(S);?
     Route: 061
     Dates: start: 20200627, end: 20200627

REACTIONS (5)
  - Application site erythema [None]
  - Application site pruritus [None]
  - Application site rash [None]
  - Pain [None]
  - Dermatitis contact [None]

NARRATIVE: CASE EVENT DATE: 20200627
